FAERS Safety Report 23103635 (Version 5)
Quarter: 2024Q1

REPORT INFORMATION
  Report Type: Spontaneous
  Country: US (occurrence: US)
  Receive Date: 20231025
  Receipt Date: 20240206
  Transmission Date: 20240410
  Serious: No
  Sender: FDA-Public Use
  Company Number: US-PFIZER INC-PV202300165194

PATIENT
  Age: 11 Year
  Sex: Male
  Weight: 45.36 kg

DRUGS (3)
  1. GENOTROPIN [Suspect]
     Active Substance: SOMATROPIN
     Indication: Growth disorder
     Dosage: 2 MG, DAILY
  2. GENOTROPIN [Suspect]
     Active Substance: SOMATROPIN
     Indication: Growth hormone deficiency
     Dosage: 2 ML, 1X/DAY
  3. ANASTROZOLE [Concomitant]
     Active Substance: ANASTROZOLE
     Indication: Growth disorder
     Dosage: 1 DF, DAILY

REACTIONS (4)
  - Device leakage [Unknown]
  - Wrong technique in device usage process [Unknown]
  - Needle issue [Unknown]
  - Product prescribing issue [Unknown]
